FAERS Safety Report 25239465 (Version 1)
Quarter: 2025Q2

REPORT INFORMATION
  Report Type: Spontaneous
  Country: IT (occurrence: IT)
  Receive Date: 20250425
  Receipt Date: 20250425
  Transmission Date: 20250717
  Serious: Yes (Hospitalization)
  Sender: MERCK SHARP & DOHME LLC
  Company Number: None

PATIENT
  Age: 69 Year
  Sex: Female
  Weight: 67 kg

DRUGS (2)
  1. KEYTRUDA [Suspect]
     Active Substance: PEMBROLIZUMAB
     Route: 042
     Dates: start: 20250110
  2. LENVATINIB [Suspect]
     Active Substance: LENVATINIB
     Route: 048
     Dates: start: 20250110

REACTIONS (3)
  - Hyperuricaemia [Recovered/Resolved]
  - Lipase increased [Recovered/Resolved]
  - Amylase increased [Recovered/Resolved]

NARRATIVE: CASE EVENT DATE: 20250128
